FAERS Safety Report 11189669 (Version 4)
Quarter: 2015Q4

REPORT INFORMATION
  Report Type: Spontaneous
  Country: US (occurrence: US)
  Receive Date: 20150615
  Receipt Date: 20151008
  Transmission Date: 20160304
  Serious: Yes (Hospitalization, Other)
  Sender: FDA-Public Use
  Company Number: US-DSJP-DSU-2015-100987

PATIENT

DRUGS (7)
  1. LIPITOR [Concomitant]
     Active Substance: ATORVASTATIN CALCIUM
     Indication: PRODUCT USED FOR UNKNOWN INDICATION
     Dosage: 20 MG, QD
     Route: 048
  2. BENICAR [Suspect]
     Active Substance: OLMESARTAN MEDOXOMIL
     Dosage: 40 MG, QD
     Route: 048
     Dates: start: 20040219, end: 20040219
  3. BENICAR HCT [Suspect]
     Active Substance: HYDROCHLOROTHIAZIDE\OLMESARTAN MEDOXOMIL
     Dosage: 40/25 MG
     Route: 048
     Dates: start: 20040317, end: 20130827
  4. ASA [Concomitant]
     Active Substance: ASPIRIN
     Indication: PRODUCT USED FOR UNKNOWN INDICATION
     Dosage: 325 MG, QD
     Route: 048
  5. BENICAR [Suspect]
     Active Substance: OLMESARTAN MEDOXOMIL
     Indication: HYPERTENSION
     Dosage: 20 MG, QD
     Route: 048
     Dates: start: 20040122, end: 20111201
  6. BENICAR [Suspect]
     Active Substance: OLMESARTAN MEDOXOMIL
     Dosage: HALF (20 MG), QD
     Route: 048
     Dates: start: 2011
  7. BENICAR HCT [Suspect]
     Active Substance: HYDROCHLOROTHIAZIDE\OLMESARTAN MEDOXOMIL
     Indication: HYPERTENSION
     Dosage: 40/12.5 MG
     Route: 048
     Dates: start: 20040419, end: 201306

REACTIONS (19)
  - Gastric ulcer [Unknown]
  - Angiopathy [Unknown]
  - Small intestinal bacterial overgrowth [Unknown]
  - Oedema [Unknown]
  - Chronic kidney disease [Not Recovered/Not Resolved]
  - Pain [Unknown]
  - Constipation [Unknown]
  - Malabsorption [Unknown]
  - Emotional distress [Unknown]
  - Impaired gastric emptying [Unknown]
  - Off label use [Unknown]
  - Proctalgia [Unknown]
  - Nephrolithiasis [Not Recovered/Not Resolved]
  - Hypotension [Unknown]
  - Gastrooesophageal reflux disease [Unknown]
  - Acute kidney injury [Unknown]
  - Liver function test abnormal [Unknown]
  - Intestinal dilatation [Unknown]
  - Dysphagia [Unknown]

NARRATIVE: CASE EVENT DATE: 2008
